FAERS Safety Report 11863808 (Version 1)
Quarter: 2015Q4

REPORT INFORMATION
  Report Type: Spontaneous
  Country: IT (occurrence: IT)
  Receive Date: 20151223
  Receipt Date: 20151223
  Transmission Date: 20160305
  Serious: Yes (Other)
  Sender: FDA-Public Use
  Company Number: IT-TEVA-620499ISR

PATIENT
  Age: 31 Year
  Sex: Female

DRUGS (1)
  1. BLEOMYCIN [Suspect]
     Active Substance: BLEOMYCIN SULFATE
     Dosage: 15,000 UI/M2
     Route: 042

REACTIONS (3)
  - Contusion [Unknown]
  - Oedema [Unknown]
  - Skin necrosis [Unknown]
